FAERS Safety Report 7453932-4 (Version None)
Quarter: 2011Q2

REPORT INFORMATION
  Report Type: 
  Country: None (occurrence: None)
  Receive Date: 20110502
  Receipt Date: 20110208
  Transmission Date: 20111010
  Serious: No
  Sender: FDA-Public Use
  Company Number: US-ASTRAZENECA-2011SE07883

PATIENT
  Age: 87 Year
  Sex: Female

DRUGS (2)
  1. NEXIUM [Suspect]
     Route: 048
     Dates: start: 20100101
  2. CRESTOR [Suspect]
     Route: 048
     Dates: start: 20080101

REACTIONS (3)
  - CONSTIPATION [None]
  - DIARRHOEA [None]
  - EYE DEGENERATIVE DISORDER [None]
